FAERS Safety Report 12360065 (Version 4)
Quarter: 2016Q4

REPORT INFORMATION
  Report Type: Spontaneous
  Country: ES (occurrence: ES)
  Receive Date: 20160512
  Receipt Date: 20161107
  Transmission Date: 20170207
  Serious: Yes (Other)
  Sender: FDA-Public Use
  Company Number: ES-GILEAD-2016-0212973

PATIENT
  Age: 44 Year
  Sex: Female
  Weight: 81 kg

DRUGS (12)
  1. NORFLOXACIN [Suspect]
     Active Substance: NORFLOXACIN
     Indication: ANTIBIOTIC PROPHYLAXIS
     Dosage: UNK
     Route: 048
     Dates: start: 20160212, end: 20160420
  2. HARVONI [Suspect]
     Active Substance: LEDIPASVIR\SOFOSBUVIR
     Indication: HEPATITIS C
     Dosage: 1 DF, UNK
     Route: 048
     Dates: start: 20160123
  3. NORFLOXACIN [Suspect]
     Active Substance: NORFLOXACIN
     Indication: ANTIBIOTIC PROPHYLAXIS
     Dosage: UNK
     Route: 048
     Dates: start: 20160128
  4. SPIRONOLACTONE. [Concomitant]
     Active Substance: SPIRONOLACTONE
  5. LORMETAZEPAM [Concomitant]
     Active Substance: LORMETAZEPAM
  6. SERETIDE [Concomitant]
     Active Substance: FLUTICASONE PROPIONATE\SALMETEROL XINAFOATE
  7. OMEPRAZOLE. [Concomitant]
     Active Substance: OMEPRAZOLE
  8. GABAPENTIN. [Concomitant]
     Active Substance: GABAPENTIN
  9. LACTULOSE. [Concomitant]
     Active Substance: LACTULOSE
     Route: 048
  10. LACTULOSE. [Concomitant]
     Active Substance: LACTULOSE
     Route: 048
  11. KONAKION [Concomitant]
     Active Substance: PHYTONADIONE
  12. MIRTAZAPINE. [Concomitant]
     Active Substance: MIRTAZAPINE

REACTIONS (2)
  - Osteonecrosis [Not Recovered/Not Resolved]
  - Arthralgia [Not Recovered/Not Resolved]

NARRATIVE: CASE EVENT DATE: 20160212
